FAERS Safety Report 8164388-0 (Version None)
Quarter: 2012Q1

REPORT INFORMATION
  Report Type: 
  Country: None (occurrence: None)
  Receive Date: 20120224
  Receipt Date: 20120103
  Transmission Date: 20120608
  Serious: Yes (Other)
  Sender: FDA-Public Use
  Company Number: PHHY2012RU001444

PATIENT
  Age: 88 Year
  Sex: Male

DRUGS (1)
  1. EXELON [Suspect]
     Dosage: 4.6 MG, FOR A WEEK
     Route: 062
     Dates: end: 20120101

REACTIONS (3)
  - URINARY RETENTION [None]
  - DELIRIUM [None]
  - CONVULSION [None]
